FAERS Safety Report 5880507-0 (Version None)
Quarter: 2008Q3

REPORT INFORMATION
  Report Type: 
  Country: None (occurrence: None)
  Receive Date: 20080912
  Receipt Date: 20080606
  Transmission Date: 20090109
  Serious: No
  Sender: FDA-Public Use
  Company Number: US-ABBOTT-08P-163-0454205-00

PATIENT
  Sex: Female
  Weight: 107.14 kg

DRUGS (13)
  1. HUMIRA [Suspect]
     Indication: RHEUMATOID ARTHRITIS
     Route: 058
     Dates: start: 20080401
  2. METHOTREXATE [Concomitant]
     Indication: RHEUMATOID ARTHRITIS
     Route: 048
     Dates: start: 20071101
  3. MONTELUKAST SODIUM [Concomitant]
     Indication: HYPERSENSITIVITY
     Route: 048
  4. MONTELUKAST SODIUM [Concomitant]
     Indication: DYSPNOEA
  5. FEXOFENADINE [Concomitant]
     Indication: HYPERSENSITIVITY
     Route: 048
  6. FEXOFENADINE [Concomitant]
     Indication: DYSPNOEA
  7. LOTREL [Concomitant]
     Indication: HYPERTENSION
     Dosage: 10/20
     Route: 048
  8. ALBUTEROL [Concomitant]
     Indication: ASTHMA PROPHYLAXIS
     Route: 055
  9. FOLIC ACID [Concomitant]
     Indication: VITAMIN SUPPLEMENTATION
     Route: 048
  10. HYDROXOCOBALAMIN [Concomitant]
     Indication: DRUG USE FOR UNKNOWN INDICATION
  11. VITAMIN E [Concomitant]
     Indication: DRUG USE FOR UNKNOWN INDICATION
  12. CALCIUM [Concomitant]
     Indication: DRUG USE FOR UNKNOWN INDICATION
  13. LOTRISONE [Concomitant]
     Indication: BLOOD CHOLESTEROL
     Route: 048

REACTIONS (2)
  - CONTUSION [None]
  - WHITE BLOOD CELL COUNT INCREASED [None]
